FAERS Safety Report 16203249 (Version 3)
Quarter: 2020Q2

REPORT INFORMATION
  Report Type: Report from Study
  Country: AU (occurrence: AU)
  Receive Date: 20190416
  Receipt Date: 20200522
  Transmission Date: 20200713
  Serious: Yes (Hospitalization, Disabling, Other)
  Sender: FDA-Public Use
  Company Number: AU-EISAI MEDICAL RESEARCH-EC-2018-048437

PATIENT
  Age: 63 Year
  Sex: Male
  Weight: 66.6 kg

DRUGS (56)
  1. HYDROMORPHONE [Suspect]
     Active Substance: HYDROMORPHONE
     Indication: ANALGESIC THERAPY
     Route: 048
     Dates: start: 20181122
  2. HALOPERIDOL. [Concomitant]
     Active Substance: HALOPERIDOL
  3. MICROLAX ENEMA [Concomitant]
  4. HYDROMORPHONE [Suspect]
     Active Substance: HYDROMORPHONE
     Route: 058
     Dates: start: 20181226
  5. DILAUDID [Concomitant]
     Active Substance: HYDROMORPHONE HYDROCHLORIDE
  6. MAXOLON [Concomitant]
     Active Substance: METOCLOPRAMIDE HYDROCHLORIDE
  7. MIDAZOLAM. [Concomitant]
     Active Substance: MIDAZOLAM
  8. PETER MACCALLUM MOUTHWASH [Concomitant]
  9. FENTANYL. [Concomitant]
     Active Substance: FENTANYL
  10. LENVATINIB [Suspect]
     Active Substance: LENVATINIB
     Route: 048
     Dates: start: 20200315
  11. JURNISTA [Concomitant]
     Active Substance: HYDROMORPHONE HYDROCHLORIDE
  12. PARACETAMOL [Concomitant]
     Active Substance: ACETAMINOPHEN
  13. COLOXYL +SENNA [Concomitant]
  14. VITAMIN D [Concomitant]
     Active Substance: VITAMIN D NOS
  15. DULOXETINE. [Concomitant]
     Active Substance: DULOXETINE
  16. NEXIUM [Concomitant]
     Active Substance: ESOMEPRAZOLE MAGNESIUM
  17. CALCIUM CARBONATE. [Concomitant]
     Active Substance: CALCIUM CARBONATE
  18. PREGABALIN. [Concomitant]
     Active Substance: PREGABALIN
  19. RAMIPRIL. [Concomitant]
     Active Substance: RAMIPRIL
  20. LORAZEPAM. [Concomitant]
     Active Substance: LORAZEPAM
  21. ENOXAPARIN [Concomitant]
     Active Substance: ENOXAPARIN
  22. METOCLOPRAMIDE. [Concomitant]
     Active Substance: METOCLOPRAMIDE
  23. GLYCEROL [Concomitant]
     Active Substance: GLYCERIN
  24. OXYNORM [Concomitant]
     Active Substance: OXYCODONE HYDROCHLORIDE
  25. ONDANSETRON [Concomitant]
     Active Substance: ONDANSETRON
  26. GLYCEROL SUPPOSITORY [Concomitant]
  27. BACTRIM [Concomitant]
     Active Substance: SULFAMETHOXAZOLE\TRIMETHOPRIM
  28. CEPHALEXIN. [Concomitant]
     Active Substance: CEPHALEXIN
  29. LENVATINIB [Suspect]
     Active Substance: LENVATINIB
     Route: 048
     Dates: start: 20200313, end: 20200313
  30. ESOMEPRAZOLE. [Concomitant]
     Active Substance: ESOMEPRAZOLE MAGNESIUM
  31. CYCLIZINE [Concomitant]
     Active Substance: CYCLIZINE
  32. LACTULOSE. [Concomitant]
     Active Substance: LACTULOSE
  33. MELATONIN [Concomitant]
     Active Substance: MELATONIN
  34. DENOSUMAB [Concomitant]
     Active Substance: DENOSUMAB
  35. METHADONE [Concomitant]
     Active Substance: METHADONE HYDROCHLORIDE
  36. NULAX FRUIT LAXATIVE [Concomitant]
  37. PARAFFIN [Concomitant]
     Active Substance: PARAFFIN
  38. LENVATINIB [Suspect]
     Active Substance: LENVATINIB
     Indication: RENAL CELL CARCINOMA
     Route: 048
     Dates: start: 20180606
  39. LENVATINIB [Suspect]
     Active Substance: LENVATINIB
     Route: 048
     Dates: start: 20200311, end: 20200311
  40. AMITRYPTYLINE [Concomitant]
     Active Substance: AMITRIPTYLINE
  41. MACROGOL 3350 [Concomitant]
     Active Substance: POLYETHYLENE GLYCOL 3350
  42. METHYLNALTREXONE [Concomitant]
     Active Substance: METHYLNALTREXONE
  43. COLECALCIFEROL [Concomitant]
     Active Substance: CHOLECALCIFEROL
  44. SENNA [Concomitant]
     Active Substance: SENNA LEAF\SENNOSIDES\SENNOSIDES A AND B
  45. DOCUSATE-SENNA [Concomitant]
  46. MORPHINE [Concomitant]
     Active Substance: MORPHINE
  47. TAMSULOSIN [Concomitant]
     Active Substance: TAMSULOSIN
  48. LENVATINIB [Suspect]
     Active Substance: LENVATINIB
     Route: 048
     Dates: end: 20200304
  49. PEMBROLIZUMAB. [Suspect]
     Active Substance: PEMBROLIZUMAB
     Indication: RENAL CELL CARCINOMA
     Route: 041
     Dates: start: 20180606
  50. PROZOSIN [Concomitant]
  51. TEMAZEPAM. [Concomitant]
     Active Substance: TEMAZEPAM
  52. LACTULOSE. [Concomitant]
     Active Substance: LACTULOSE
  53. BISACODYL. [Concomitant]
     Active Substance: BISACODYL
  54. FLEET ENEMA [Concomitant]
     Active Substance: SODIUM PHOSPHATE, DIBASIC\SODIUM PHOSPHATE, MONOBASIC
  55. BUPIVACAINE. [Concomitant]
     Active Substance: BUPIVACAINE
  56. PROPANOLOL [Concomitant]
     Active Substance: PROPRANOLOL HYDROCHLORIDE

REACTIONS (7)
  - Prostatic abscess [Recovering/Resolving]
  - Constipation [Not Recovered/Not Resolved]
  - Vomiting [Recovered/Resolved]
  - Hypophosphataemia [Recovered/Resolved]
  - Nausea [Recovered/Resolved]
  - Pain [Recovering/Resolving]
  - Pathological fracture [Recovering/Resolving]

NARRATIVE: CASE EVENT DATE: 20181124
